FAERS Safety Report 5441822-8 (Version None)
Quarter: 2007Q3

REPORT INFORMATION
  Report Type: 
  Country: None (occurrence: None)
  Receive Date: 20070830
  Receipt Date: 20070830
  Transmission Date: 20080115
  Serious: Yes (Other)
  Sender: FDA-Public Use
  Company Number: None

PATIENT
  Age: 57 Year
  Sex: Female
  Weight: 69.8539 kg

DRUGS (1)
  1. VAGIFEM [Suspect]
     Indication: MENOPAUSAL SYMPTOMS
     Dosage: 25MCG TWICE WEEKLY VAG
     Route: 067
     Dates: start: 20070410, end: 20070817

REACTIONS (3)
  - BREAST TENDERNESS [None]
  - ENDOMETRIAL HYPERTROPHY [None]
  - VAGINAL HAEMORRHAGE [None]
